FAERS Safety Report 7323144-3 (Version None)
Quarter: 2011Q1

REPORT INFORMATION
  Report Type: 
  Country: None (occurrence: None)
  Receive Date: 20110301
  Receipt Date: 20110224
  Transmission Date: 20110831
  Serious: Yes (Congenital Anomaly)
  Sender: FDA-Public Use
  Company Number: DE-PFIZER INC-2011040761

PATIENT

DRUGS (7)
  1. LYRICA [Concomitant]
     Dosage: UNK
     Route: 064
     Dates: start: 20090101
  2. PROPOFAN [Concomitant]
     Dosage: UNK
     Route: 064
  3. ESCITALOPRAM OXALATE [Suspect]
     Dosage: UNK
     Route: 064
     Dates: start: 20090501
  4. ATARAX [Suspect]
     Dosage: 25 MG, UNK
     Route: 064
     Dates: start: 20090501
  5. FOLIC ACID [Concomitant]
     Dosage: UNK
     Route: 064
     Dates: start: 20090101
  6. MYOLASTAN [Concomitant]
     Dosage: UNK
     Route: 064
     Dates: start: 20090101
  7. LIDOCAINE [Suspect]
     Dosage: UNK
     Route: 064
     Dates: start: 20090501

REACTIONS (4)
  - DRUG EXPOSURE DURING PREGNANCY [None]
  - TALIPES [None]
  - ARNOLD-CHIARI MALFORMATION [None]
  - SPINA BIFIDA [None]
